FAERS Safety Report 6693284-0 (Version None)
Quarter: 2010Q2

REPORT INFORMATION
  Report Type: 
  Country: None (occurrence: None)
  Receive Date: 20100421
  Receipt Date: 20100421
  Transmission Date: 20101027
  Serious: No
  Sender: FDA-Public Use
  Company Number: None

PATIENT
  Sex: Female
  Weight: 64.8644 kg

DRUGS (2)
  1. CABERGOLINE [Suspect]
     Indication: PROLACTINOMA
     Dosage: 0.5 MG TWICE A WEEK PO
     Route: 048
     Dates: start: 20001130, end: 20081101
  2. CABERGOLINE [Suspect]
     Indication: PROLACTINOMA
     Dosage: 0.5 MG TWICE A WEEK PO
     Route: 048
     Dates: start: 20090301, end: 20100301

REACTIONS (6)
  - ANTIPHOSPHOLIPID ANTIBODIES POSITIVE [None]
  - ARTHRALGIA [None]
  - DYSPNOEA [None]
  - MIXED CONNECTIVE TISSUE DISEASE [None]
  - PULMONARY HYPERTENSION [None]
  - RAYNAUD'S PHENOMENON [None]
